FAERS Safety Report 6333906-7 (Version None)
Quarter: 2009Q3

REPORT INFORMATION
  Report Type: 
  Country: None (occurrence: None)
  Receive Date: 20090829
  Receipt Date: 20090709
  Transmission Date: 20100115
  Serious: No
  Sender: FDA-Public Use
  Company Number: US-ABBOTT-09P-163-0584386-00

PATIENT
  Sex: Female
  Weight: 79.45 kg

DRUGS (5)
  1. SIMCOR [Suspect]
     Indication: BLOOD TRIGLYCERIDES INCREASED
     Dosage: 500MG/20MG FOR 3 DOSES EVERY NIGHT THEN INCREASED TO 2 PILLS EVERY NIGHT
     Dates: start: 20090601
  2. SIMCOR [Suspect]
     Indication: LOW DENSITY LIPOPROTEIN
  3. IBUPROFEN [Concomitant]
     Indication: DRUG USE FOR UNKNOWN INDICATION
     Dosage: 2 X 200 MG
     Route: 048
  4. FOSAMAX [Concomitant]
     Indication: DRUG USE FOR UNKNOWN INDICATION
     Route: 048
  5. CADUET [Concomitant]
     Indication: DRUG USE FOR UNKNOWN INDICATION

REACTIONS (3)
  - ABDOMINAL DISCOMFORT [None]
  - DIZZINESS [None]
  - FLUSHING [None]
